FAERS Safety Report 20394917 (Version 1)
Quarter: 2022Q1

REPORT INFORMATION
  Report Type: Report from Study
  Country: IT (occurrence: IT)
  Receive Date: 20220130
  Receipt Date: 20220130
  Transmission Date: 20220423
  Serious: Yes (Hospitalization, Other)
  Sender: FDA-Public Use
  Company Number: IT-JAZZ-2018-IT-005190

PATIENT
  Age: 10 Month
  Sex: Male
  Weight: 9 kg

DRUGS (3)
  1. DEFITELIO [Suspect]
     Active Substance: DEFIBROTIDE SODIUM
     Indication: Venoocclusive disease
     Dosage: 25 MG/KG, QD
     Dates: start: 20180124, end: 20180206
  2. CYCLOSPORINE [Concomitant]
     Active Substance: CYCLOSPORINE
     Indication: Prophylaxis
     Dosage: 20 MG
     Route: 048
     Dates: start: 20171219
  3. PREDNISONE [Concomitant]
     Active Substance: PREDNISONE
     Indication: Prophylaxis
     Dosage: 2.5 MG
     Route: 048
     Dates: start: 20171219

REACTIONS (5)
  - Pneumonia fungal [Recovering/Resolving]
  - Hypoxia [Recovering/Resolving]
  - Bronchoalveolar lavage [Recovering/Resolving]
  - Graft versus host disease [Unknown]
  - Off label use [Unknown]

NARRATIVE: CASE EVENT DATE: 20180124
